FAERS Safety Report 5504874-2 (Version None)
Quarter: 2007Q4

REPORT INFORMATION
  Report Type: 
  Country: None (occurrence: None)
  Receive Date: 20071102
  Receipt Date: 20071025
  Transmission Date: 20080405
  Serious: Yes (Other)
  Sender: FDA-Public Use
  Company Number: PHBS2007BR18179

PATIENT
  Sex: Female

DRUGS (2)
  1. ADILIT [Concomitant]
     Route: 063
  2. SYNTOCINON [Suspect]
     Route: 063

REACTIONS (2)
  - DIARRHOEA [None]
  - DRUG EXPOSURE VIA BREAST MILK [None]
